FAERS Safety Report 23762346 (Version 1)
Quarter: 2024Q2

REPORT INFORMATION
  Report Type: Spontaneous
  Country: US (occurrence: None)
  Receive Date: 20240418
  Receipt Date: 20240418
  Transmission Date: 20240716
  Serious: Yes (Other)
  Sender: FDA-Public Use
  Company Number: None

PATIENT
  Age: 60 Year
  Sex: Male

DRUGS (1)
  1. ROSUVASTATIN [Suspect]
     Active Substance: ROSUVASTATIN
     Indication: Type V hyperlipidaemia
     Dosage: 10 MG DAILY ORAL
     Route: 048
     Dates: start: 20240227, end: 20240412

REACTIONS (11)
  - Headache [None]
  - Oedema peripheral [None]
  - Oedema peripheral [None]
  - Hunger [None]
  - Cardiac disorder [None]
  - Myalgia [None]
  - Fatigue [None]
  - Middle insomnia [None]
  - Dyspnoea [None]
  - Electrocardiogram abnormal [None]
  - Ventricular extrasystoles [None]

NARRATIVE: CASE EVENT DATE: 20240414
